FAERS Safety Report 9422663 (Version 1)
Quarter: 2013Q3

REPORT INFORMATION
  Report Type: Spontaneous
  Country: RO (occurrence: RO)
  Receive Date: 20130726
  Receipt Date: 20130726
  Transmission Date: 20140515
  Serious: Yes (Other)
  Sender: FDA-Public Use
  Company Number: RO-RANBAXY-2013RR-71596

PATIENT
  Age: 20 Year
  Sex: Female

DRUGS (1)
  1. PARACETAMOL [Suspect]
     Dosage: TENS TABLETS
     Route: 048

REACTIONS (3)
  - Toxicity to various agents [Recovering/Resolving]
  - Suicide attempt [Recovered/Resolved]
  - Exposure during pregnancy [Recovering/Resolving]
